FAERS Safety Report 10409350 (Version 1)
Quarter: 2014Q3

REPORT INFORMATION
  Report Type: Spontaneous
  Country: US (occurrence: None)
  Receive Date: 20140825
  Receipt Date: 20140825
  Transmission Date: 20150326
  Serious: No
  Sender: FDA-Public Use
  Company Number: None

PATIENT
  Age: 79 Year
  Sex: Female
  Weight: 74.84 kg

DRUGS (2)
  1. CIPRO [Suspect]
     Active Substance: CIPROFLOXACIN HYDROCHLORIDE
     Indication: PROPHYLAXIS
     Dosage: 1 PILL 2X A DAY, TWICE DAILY, TAKEN BY MOUTH
     Route: 048
  2. CIPRO [Suspect]
     Active Substance: CIPROFLOXACIN HYDROCHLORIDE
     Indication: POST PROCEDURAL INFECTION
     Dosage: 1 PILL 2X A DAY, TWICE DAILY, TAKEN BY MOUTH
     Route: 048

REACTIONS (1)
  - Tendonitis [None]

NARRATIVE: CASE EVENT DATE: 20140815
